FAERS Safety Report 25149155 (Version 1)
Quarter: 2025Q2

REPORT INFORMATION
  Report Type: Spontaneous
  Country: PT (occurrence: PT)
  Receive Date: 20250402
  Receipt Date: 20250402
  Transmission Date: 20250717
  Serious: Yes (Death, Hospitalization, Other)
  Sender: JOHNSON AND JOHNSON
  Company Number: PT-JNJFOC-20250373541

PATIENT
  Age: 68 Year
  Sex: Female

DRUGS (9)
  1. RYBREVANT [Suspect]
     Active Substance: AMIVANTAMAB-VMJW
     Indication: Non-small cell lung cancer
     Route: 065
  2. PANTOPRAZOLE [Concomitant]
     Active Substance: PANTOPRAZOLE
  3. FENTANYL [Concomitant]
     Active Substance: FENTANYL
  4. PREGABALIN [Concomitant]
     Active Substance: PREGABALIN
  5. TRAZODONE [Concomitant]
     Active Substance: TRAZODONE HYDROCHLORIDE
  6. METFORMIN [Concomitant]
     Active Substance: METFORMIN HYDROCHLORIDE
  7. BISOPROLOL [Concomitant]
     Active Substance: BISOPROLOL
  8. FUROSEMIDE [Concomitant]
     Active Substance: FUROSEMIDE
  9. SPIRONOLACTONE [Concomitant]
     Active Substance: SPIRONOLACTONE

REACTIONS (5)
  - Death [Fatal]
  - Metastases to central nervous system [Unknown]
  - Disease progression [Unknown]
  - Respiratory tract infection [Unknown]
  - Neurological symptom [Unknown]

NARRATIVE: CASE EVENT DATE: 20240101
